FAERS Safety Report 5491722-2 (Version None)
Quarter: 2007Q4

REPORT INFORMATION
  Report Type: 
  Country: None (occurrence: None)
  Receive Date: 20071019
  Receipt Date: 20071019
  Transmission Date: 20080405
  Serious: Yes (Life-Threatening)
  Sender: FDA-Public Use
  Company Number: None

PATIENT
  Age: 78 Year

DRUGS (1)
  1. VERSED [Suspect]
     Dosage: 2MG
     Dates: start: 20070403

REACTIONS (4)
  - HYPOTENSION [None]
  - POST PROCEDURAL COMPLICATION [None]
  - RESPIRATORY RATE DECREASED [None]
  - UNRESPONSIVE TO STIMULI [None]
